FAERS Safety Report 9665868 (Version 2)
Quarter: 2013Q4

REPORT INFORMATION
  Report Type: Spontaneous
  Country: CN (occurrence: CN)
  Receive Date: 20131104
  Receipt Date: 20131108
  Transmission Date: 20140711
  Serious: Yes (Other)
  Sender: FDA-Public Use
  Company Number: CN-ASTRAZENECA-2013SE78597

PATIENT
  Sex: Female

DRUGS (1)
  1. PROPOFOL (NON AZ PRODUCT) [Suspect]
     Indication: ANAESTHESIA
     Route: 042

REACTIONS (1)
  - Rhabdomyolysis [Unknown]
